FAERS Safety Report 5050595-2 (Version None)
Quarter: 2006Q3

REPORT INFORMATION
  Report Type: 
  Country: None (occurrence: None)
  Receive Date: 20060713
  Receipt Date: 20060629
  Transmission Date: 20061208
  Serious: Yes (Other)
  Sender: FDA-Public Use
  Company Number: DE-GLAXOSMITHKLINE-D0050171A

PATIENT
  Age: 55 Year
  Sex: Female

DRUGS (3)
  1. AUGMENTIN '125' [Suspect]
     Dosage: 1TAB THREE TIMES PER DAY
     Route: 048
     Dates: start: 20060511, end: 20060515
  2. ESTRADOT [Concomitant]
     Indication: HORMONE REPLACEMENT THERAPY
     Dosage: 37.5UG PER DAY
     Route: 062
     Dates: end: 20060615
  3. HORMONE [Concomitant]
     Indication: HORMONE REPLACEMENT THERAPY
     Route: 045
     Dates: start: 20060616

REACTIONS (10)
  - APTYALISM [None]
  - ASTHENIA [None]
  - BURNING SENSATION MUCOSAL [None]
  - DIZZINESS [None]
  - DRY MOUTH [None]
  - DYSPEPSIA [None]
  - GLOSSODYNIA [None]
  - HEADACHE [None]
  - HEPATIC ENZYME INCREASED [None]
  - MALAISE [None]
